FAERS Safety Report 4433218-2 (Version None)
Quarter: 2004Q3

REPORT INFORMATION
  Report Type: 
  Country: None (occurrence: None)
  Receive Date: 20040823
  Receipt Date: 20040720
  Transmission Date: 20050211
  Serious: Yes (Disabling)
  Sender: FDA-Public Use
  Company Number: 8526

PATIENT
  Age: 7 Year
  Sex: Male

DRUGS (5)
  1. METHOTREXATE [Suspect]
     Indication: BONE SARCOMA
     Dosage: 302 G TOTAL
  2. IFOSFAMIDE [Suspect]
     Indication: BONE SARCOMA
  3. BLEOMYCIN [Concomitant]
  4. CISPLATIN [Concomitant]
  5. DOXORUBICIN HCL [Concomitant]

REACTIONS (4)
  - HUMERUS FRACTURE [None]
  - IMPAIRED HEALING [None]
  - OSTEOPOROTIC FRACTURE [None]
  - TIBIA FRACTURE [None]
